FAERS Safety Report 25112667 (Version 1)
Quarter: 2025Q1

REPORT INFORMATION
  Report Type: Spontaneous
  Country: KZ (occurrence: KZ)
  Receive Date: 20250324
  Receipt Date: 20250324
  Transmission Date: 20250408
  Serious: Yes (Other)
  Sender: EMD SERONO INC
  Company Number: KZ-Merck Healthcare KGaA-2025013558

PATIENT
  Age: 23 Year
  Sex: Male

DRUGS (5)
  1. MAVENCLAD [Suspect]
     Active Substance: CLADRIBINE
     Indication: Relapsing-remitting multiple sclerosis
  2. MAVENCLAD [Suspect]
     Active Substance: CLADRIBINE
  3. CHOLECALCIFEROL [Concomitant]
     Active Substance: CHOLECALCIFEROL
     Indication: Product used for unknown indication
     Dosage: 5000 (UNIT WAS NOT SPECIFIED) WITH MEALS 1 MONTH
  4. COBAMAMIDE [Concomitant]
     Active Substance: COBAMAMIDE
     Indication: Product used for unknown indication
     Dosage: WITH MEALS FOR 1 MONTH.
  5. SOLU-MEDROL [Concomitant]
     Active Substance: METHYLPREDNISOLONE SODIUM SUCCINATE
     Indication: Product used for unknown indication

REACTIONS (4)
  - Immunodeficiency [Unknown]
  - Multiple sclerosis [Unknown]
  - Productive cough [Unknown]
  - Asthenia [Unknown]

NARRATIVE: CASE EVENT DATE: 20250308
